FAERS Safety Report 5669052-5 (Version None)
Quarter: 2008Q1

REPORT INFORMATION
  Report Type: 
  Country: None (occurrence: None)
  Receive Date: 20080317
  Receipt Date: 20080303
  Transmission Date: 20080703
  Serious: Yes (Hospitalization)
  Sender: FDA-Public Use
  Company Number: AU-AMGEN-QUU267928

PATIENT
  Sex: Female

DRUGS (4)
  1. NEULASTA [Suspect]
     Indication: CHEMOTHERAPY
     Route: 065
     Dates: start: 20071204
  2. DOCETAXEL [Concomitant]
     Dates: start: 20071203
  3. ADRIAMYCIN [Concomitant]
     Dates: start: 20071203
  4. CYCLOPHOSPHAMIDE [Concomitant]
     Dates: start: 20071203

REACTIONS (1)
  - FEBRILE NEUTROPENIA [None]
